FAERS Safety Report 4907279-8 (Version None)
Quarter: 2006Q1

REPORT INFORMATION
  Report Type: 
  Country: None (occurrence: None)
  Receive Date: 20060207
  Receipt Date: 20060125
  Transmission Date: 20060701
  Serious: Yes (Death)
  Sender: FDA-Public Use
  Company Number: 2005107362

PATIENT
  Age: 49 Year
  Sex: Male

DRUGS (13)
  1. NEURONTIN [Suspect]
     Indication: BIPOLAR DISORDER
     Dosage: UNKNOWN (400 MG, UNKNOWN), UNKNOWN
     Route: 065
     Dates: start: 19961217
  2. NEURONTIN [Suspect]
     Indication: MIGRAINE
     Dosage: UNKNOWN (400 MG, UNKNOWN), UNKNOWN
     Route: 065
     Dates: start: 19961217
  3. NEURONTIN [Suspect]
     Indication: PAIN
     Dosage: UNKNOWN (400 MG, UNKNOWN), UNKNOWN
     Route: 065
     Dates: start: 19961217
  4. NEURONTIN [Suspect]
     Indication: RESTLESS LEGS SYNDROME
     Dosage: UNKNOWN (400 MG, UNKNOWN), UNKNOWN
     Route: 065
     Dates: start: 19961217
  5. XANAX [Concomitant]
  6. OXYCONTIN [Concomitant]
  7. VICODIN ES [Concomitant]
  8. ALL OTHER THERAPEUTIC PRODUCTS (ALL OTHER THERAPEUTIC PRODUCTS) [Concomitant]
  9. VALIUM [Concomitant]
  10. LORCET-HD [Concomitant]
  11. AMARYL [Concomitant]
  12. ALBUTEROL [Concomitant]
  13. CLARITIN-D [Concomitant]

REACTIONS (11)
  - CERVICOGENIC HEADACHE [None]
  - COMPLETED SUICIDE [None]
  - DRUG INEFFECTIVE [None]
  - ECONOMIC PROBLEM [None]
  - GUN SHOT WOUND [None]
  - INTERVERTEBRAL DISC PROTRUSION [None]
  - LIGAMENT SPRAIN [None]
  - LOSS OF CONTROL OF LEGS [None]
  - PAIN IN EXTREMITY [None]
  - SCIATICA [None]
  - TREATMENT NONCOMPLIANCE [None]
